FAERS Safety Report 17505834 (Version 1)
Quarter: 2020Q1

REPORT INFORMATION
  Report Type: Spontaneous
  Country: JP (occurrence: JP)
  Receive Date: 20200306
  Receipt Date: 20200306
  Transmission Date: 20200409
  Serious: Yes (Other)
  Sender: FDA-Public Use
  Company Number: JP-PFIZER INC-2020094763

PATIENT

DRUGS (1)
  1. SOLANAX [Suspect]
     Active Substance: ALPRAZOLAM
     Route: 048

REACTIONS (1)
  - Spinal ligament ossification [Not Recovered/Not Resolved]
